FAERS Safety Report 6926881-5 (Version None)
Quarter: 2010Q3

REPORT INFORMATION
  Report Type: 
  Country: None (occurrence: None)
  Receive Date: 20100816
  Receipt Date: 20100719
  Transmission Date: 20110219
  Serious: No
  Sender: FDA-Public Use
  Company Number: US-ABBOTT-10P-163-0654439-00

PATIENT
  Sex: Male
  Weight: 118.04 kg

DRUGS (2)
  1. SIMCOR [Suspect]
     Indication: METABOLIC SYNDROME
     Dosage: 500/20MG AT BEDTIME
     Dates: start: 20100601
  2. SIMCOR [Suspect]
     Indication: BLOOD CHOLESTEROL ABNORMAL

REACTIONS (1)
  - HOT FLUSH [None]
